FAERS Safety Report 6398643-1 (Version None)
Quarter: 2009Q4

REPORT INFORMATION
  Report Type: 
  Country: None (occurrence: None)
  Receive Date: 20091007
  Receipt Date: 20090929
  Transmission Date: 20100525
  Serious: Yes (Other)
  Sender: FDA-Public Use
  Company Number: CLOF-1000718

PATIENT
  Age: 53 Year
  Sex: Male

DRUGS (6)
  1. EVOLTRA (CLOFARABINE) SOLUTION FOR INFUSION [Suspect]
     Indication: ACUTE MYELOID LEUKAEMIA
     Dosage: 30 MG/M2, QDX5, INTRAVENOUS ; 30 MG/M2, QDX5, INTRAVENOUS
     Route: 042
     Dates: start: 20080101, end: 20080101
  2. EVOLTRA (CLOFARABINE) SOLUTION FOR INFUSION [Suspect]
     Indication: ACUTE MYELOID LEUKAEMIA
     Dosage: 30 MG/M2, QDX5, INTRAVENOUS ; 30 MG/M2, QDX5, INTRAVENOUS
     Route: 042
     Dates: start: 20080101, end: 20080101
  3. G-CSF (GRANULOCYTE COLONY STIMULATING FACTOR) [Concomitant]
  4. BETA BLOCKING AGENTS [Concomitant]
  5. ASPIRIN [Concomitant]
  6. NITROGLYCERIN [Concomitant]

REACTIONS (6)
  - ENTEROCOCCAL SEPSIS [None]
  - HYPOTENSION [None]
  - MYOCARDIAL ISCHAEMIA [None]
  - PANCYTOPENIA [None]
  - STAPHYLOCOCCAL SEPSIS [None]
  - STOMATITIS [None]
